FAERS Safety Report 10158218 (Version 2)
Quarter: 2014Q2

REPORT INFORMATION
  Report Type: Spontaneous
  Country: JP (occurrence: JP)
  Receive Date: 20140507
  Receipt Date: 20140519
  Transmission Date: 20141212
  Serious: Yes (Other)
  Sender: FDA-Public Use
  Company Number: JP-TEVA-479312ISR

PATIENT
  Age: 57 Year
  Sex: Male

DRUGS (3)
  1. FLUVOXAMINE [Suspect]
     Dosage: 300 MILLIGRAM DAILY;
     Route: 065
  2. DULOXETINE [Suspect]
     Dosage: 30 MILLIGRAM DAILY;
     Route: 065
  3. DULOXETINE [Suspect]
     Dosage: 40 MILLIGRAM DAILY;
     Route: 065

REACTIONS (2)
  - Arteriospasm coronary [Recovered/Resolved]
  - Serotonin syndrome [Recovered/Resolved]
